FAERS Safety Report 5840011-2 (Version None)
Quarter: 2008Q3

REPORT INFORMATION
  Report Type: 
  Country: None (occurrence: None)
  Receive Date: 20080811
  Receipt Date: 20080724
  Transmission Date: 20090109
  Serious: Yes (Other)
  Sender: FDA-Public Use
  Company Number: IE-BAYER-200812058BNE

PATIENT

DRUGS (1)
  1. MABCAMPATH [Suspect]
     Indication: DRUG USE FOR UNKNOWN INDICATION

REACTIONS (3)
  - MOUTH ULCERATION [None]
  - OESOPHAGEAL ULCER [None]
  - TONGUE ULCERATION [None]
